FAERS Safety Report 20004930 (Version 1)
Quarter: 2021Q4

REPORT INFORMATION
  Report Type: Report from Study
  Country: IT (occurrence: IT)
  Receive Date: 20211028
  Receipt Date: 20211028
  Transmission Date: 20220304
  Serious: Yes (Other)
  Sender: FDA-Public Use
  Company Number: None

PATIENT
  Age: 6 Month
  Sex: Male

DRUGS (1)
  1. MENINGOCOCCAL GROUP B VACCINE [Suspect]
     Active Substance: MENINGOCOCCAL GROUP B VACCINE
     Indication: Prophylaxis
     Route: 030
     Dates: start: 20211005

REACTIONS (2)
  - Vaccination site mass [Recovering/Resolving]
  - Pyrexia [Recovering/Resolving]

NARRATIVE: CASE EVENT DATE: 20211005
